FAERS Safety Report 7150390-4 (Version None)
Quarter: 2010Q4

REPORT INFORMATION
  Report Type: 
  Country: None (occurrence: None)
  Receive Date: 20101207
  Receipt Date: 20101207
  Transmission Date: 20110411
  Serious: Yes (Hospitalization)
  Sender: FDA-Public Use
  Company Number: None

PATIENT
  Sex: Female
  Weight: 90 kg

DRUGS (4)
  1. CIPRO [Suspect]
     Indication: BREAST ABSCESS
     Dosage: 500MG BID PO
     Route: 048
     Dates: start: 20100404, end: 20100415
  2. CIPRO [Suspect]
     Indication: CELLULITIS
     Dosage: 500MG BID PO
     Route: 048
     Dates: start: 20100404, end: 20100415
  3. CLINDAMYCIN [Suspect]
     Dosage: 300MG Q6HR PO
     Route: 048
     Dates: start: 20100404, end: 20100415
  4. LEVOTHYROXINE [Concomitant]

REACTIONS (4)
  - ARTHRALGIA [None]
  - BREAST MASS [None]
  - ERYTHEMA NODOSUM [None]
  - RASH [None]
